FAERS Safety Report 9969789 (Version 1)
Quarter: 2014Q1

REPORT INFORMATION
  Report Type: Spontaneous
  Country: US (occurrence: None)
  Receive Date: 20140304
  Receipt Date: 20140304
  Transmission Date: 20141002
  Serious: Yes (Disabling)
  Sender: FDA-Public Use
  Company Number: None

PATIENT
  Sex: 0

DRUGS (1)
  1. METOPROLOL [Suspect]
     Indication: ATRIAL FIBRILLATION
     Dosage: 1 TABLET
     Route: 048
     Dates: start: 20130501, end: 20131020

REACTIONS (1)
  - Deafness unilateral [None]
